FAERS Safety Report 6393061-4 (Version None)
Quarter: 2009Q4

REPORT INFORMATION
  Report Type: 
  Country: None (occurrence: None)
  Receive Date: 20091008
  Receipt Date: 20090929
  Transmission Date: 20100525
  Serious: Yes (Other)
  Sender: FDA-Public Use
  Company Number: US-JNJFOC-20090908763

PATIENT
  Sex: Female
  Weight: 62.14 kg

DRUGS (3)
  1. REMICADE [Suspect]
     Route: 042
     Dates: start: 20060101, end: 20090805
  2. REMICADE [Suspect]
     Route: 042
     Dates: start: 20060101, end: 20090805
  3. REMICADE [Suspect]
     Indication: RHEUMATOID ARTHRITIS
     Route: 042
     Dates: start: 20060101, end: 20090805

REACTIONS (1)
  - FOOT OPERATION [None]
